FAERS Safety Report 18886532 (Version 1)
Quarter: 2021Q1

REPORT INFORMATION
  Report Type: Report from Study
  Country: IT (occurrence: IT)
  Receive Date: 20210212
  Receipt Date: 20210212
  Transmission Date: 20210420
  Serious: Yes (Hospitalization)
  Sender: FDA-Public Use
  Company Number: IT-TEVA-2021-IT-1878593

PATIENT
  Age: 91 Year
  Sex: Female

DRUGS (9)
  1. TALOFEN [Suspect]
     Active Substance: PROMAZINE HYDROCHLORIDE
     Indication: DRUG ABUSE
     Dates: start: 20201231, end: 20201231
  2. LEXOTAN 2,5 MG/ML GOCCE ORALI SOLUZIONE [Suspect]
     Active Substance: BROMAZEPAM
     Indication: DRUG ABUSE
     Dates: start: 20201231, end: 20201231
  3. ADALAT CRONO 30 MG COMPRESSE A RILASCIO MODIFICATO [Concomitant]
     Active Substance: NIFEDIPINE
  4. PAROXETINE. [Concomitant]
     Active Substance: PAROXETINE
  5. QUETIAPINE. [Suspect]
     Active Substance: QUETIAPINE
     Indication: DRUG ABUSE
     Dates: start: 20201231, end: 20201231
  6. ENDOXAN BAXTER [Concomitant]
     Active Substance: CYCLOPHOSPHAMIDE
  7. BLOPRESS [Concomitant]
     Active Substance: CANDESARTAN CILEXETIL
  8. NEXIUM [Concomitant]
     Active Substance: ESOMEPRAZOLE MAGNESIUM
  9. ESAPENT [Concomitant]

REACTIONS (2)
  - Drug abuse [Recovering/Resolving]
  - Sopor [Recovering/Resolving]

NARRATIVE: CASE EVENT DATE: 20201231
